FAERS Safety Report 9241551 (Version 2)
Quarter: 2013Q2

REPORT INFORMATION
  Report Type: Spontaneous
  Country: US (occurrence: US)
  Receive Date: 20130419
  Receipt Date: 20130509
  Transmission Date: 20140414
  Serious: Yes (Life-Threatening)
  Sender: FDA-Public Use
  Company Number: PHEH2013US008697

PATIENT
  Age: 84 Year
  Sex: Female
  Weight: 52.15 kg

DRUGS (6)
  1. RECLAST [Suspect]
     Indication: OSTEOPOROSIS
     Dosage: UNK
     Route: 042
     Dates: start: 20130327
  2. CALCIUM [Concomitant]
  3. VITAMIN D [Concomitant]
     Dosage: UNK
  4. NITROFURANTIN [Concomitant]
     Dosage: UNK
  5. JANUVIA [Concomitant]
     Dosage: UNK
  6. SIMVASTATIN [Concomitant]
     Dosage: UNK

REACTIONS (5)
  - Feeling abnormal [Unknown]
  - Malaise [Unknown]
  - Vomiting [Recovered/Resolved]
  - Diarrhoea [Recovered/Resolved]
  - Asthenia [Recovered/Resolved]
